FAERS Safety Report 12154856 (Version 1)
Quarter: 2016Q1

REPORT INFORMATION
  Report Type: Spontaneous
  Country: MX (occurrence: MX)
  Receive Date: 20160307
  Receipt Date: 20160307
  Transmission Date: 20160526
  Serious: Yes (Other)
  Sender: FDA-Public Use
  Company Number: MX-SA-2016SA039265

PATIENT
  Age: 67 Year
  Sex: Female
  Weight: 68 kg

DRUGS (5)
  1. ARAVA [Suspect]
     Active Substance: LEFLUNOMIDE
     Indication: RHEUMATOID ARTHRITIS
     Route: 048
     Dates: start: 2009
  2. LEDERTREXATE /NET/ [Concomitant]
     Indication: RHEUMATOID ARTHRITIS
     Dosage: THERAPY IS ONGOING FOR APPROXIMATELY 7 YEARS
     Route: 048
     Dates: start: 2009
  3. NORFENON [Concomitant]
     Dosage: THERAPY IS ONGOING FOR APPROXIMATELY 2 YEARS
     Route: 048
     Dates: start: 2014
  4. PIASCLEDINE [Concomitant]
     Active Substance: AVOCADO OIL\SOYBEAN OIL
     Indication: RHEUMATOID ARTHRITIS
     Dosage: THERAPY IS ONGOING FOR APPROXIMATELY 7 YEARS
     Route: 048
     Dates: start: 2009
  5. ASPIRIN. [Concomitant]
     Active Substance: ASPIRIN
     Dosage: THERAPY IS ONGOING FOR APPROXIMATELY 2 YEARS
     Route: 048
     Dates: start: 2014

REACTIONS (2)
  - Cardiac failure [Not Recovered/Not Resolved]
  - Inappropriate schedule of drug administration [Unknown]

NARRATIVE: CASE EVENT DATE: 2009
